FAERS Safety Report 5400669-9 (Version None)
Quarter: 2007Q3

REPORT INFORMATION
  Report Type: 
  Country: None (occurrence: None)
  Receive Date: 20070730
  Receipt Date: 20070718
  Transmission Date: 20080115
  Serious: Yes (Other)
  Sender: FDA-Public Use
  Company Number: US-PFIZER INC-2007017991

PATIENT
  Sex: Female

DRUGS (11)
  1. XALATAN [Suspect]
     Indication: GLAUCOMA
  2. XALATAN [Suspect]
     Indication: OCULAR HYPERTENSION
  3. SUNITINIB MALATE [Concomitant]
  4. OXYCONTIN [Concomitant]
  5. MORPHINE [Concomitant]
  6. CLONAZEPAM [Concomitant]
  7. PREDNISOLONE [Concomitant]
  8. LEVOTHYROXINE SODIUM [Concomitant]
  9. OMEPRAZOLE [Concomitant]
  10. ESTROGENS [Concomitant]
  11. FAMVIR [Concomitant]

REACTIONS (2)
  - EYE IRRITATION [None]
  - RENAL CELL CARCINOMA STAGE UNSPECIFIED [None]
